FAERS Safety Report 12285528 (Version 1)
Quarter: 2016Q2

REPORT INFORMATION
  Report Type: Spontaneous
  Country: GB (occurrence: GB)
  Receive Date: 20160420
  Receipt Date: 20160420
  Transmission Date: 20160815
  Serious: Yes (Hospitalization, Other)
  Sender: FDA-Public Use
  Company Number: GB-TEVA-651706ACC

PATIENT
  Age: 67 Year
  Sex: Female

DRUGS (21)
  1. FULTIUM-D3 [Concomitant]
     Dosage: 4 DOSAGE FORMS DAILY; 800 UNITS, 2 DF, TWICE DAILY
  2. PIOGLITAZONE HYDROCHLORIDE. [Concomitant]
     Active Substance: PIOGLITAZONE HYDROCHLORIDE
     Dosage: 15 MG ONCE DAILY, IN THE MORNING
  3. SERETIDE [Concomitant]
     Active Substance: FLUTICASONE PROPIONATE\SALMETEROL XINAFOATE
     Dosage: 2 DOSAGE FORMS DAILY; 500. 1 DF TWICE DAILY
  4. SALBUTAMOL [Suspect]
     Active Substance: ALBUTEROL
     Indication: CHRONIC OBSTRUCTIVE PULMONARY DISEASE
     Dosage: 10 MILLIGRAM DAILY; 2.5 MG, 4 TIMES A DAY. BUT OVERUSED THIS DOSE
     Route: 055
  5. TRAZODONE [Concomitant]
     Active Substance: TRAZODONE HYDROCHLORIDE
     Dosage: 50 MILLIGRAM DAILY; 50 MG, ONCE DAILY AT NIGHT
  6. ZOPICLONE [Concomitant]
     Active Substance: ZOPICLONE
     Dosage: 7.5 MILLIGRAM DAILY; 7.5 MG ONCE DAILY, AT NIGHT
  7. OMEPRAZOLE. [Concomitant]
     Active Substance: OMEPRAZOLE
     Dosage: 40 MILLIGRAM DAILY;
  8. PHYLLOCONTIN [Concomitant]
     Active Substance: AMINOPHYLLINE
     Dosage: 450 MILLIGRAM DAILY;
  9. DOXYCYCLINE. [Concomitant]
     Active Substance: DOXYCYCLINE
     Dosage: 100 MILLIGRAM DAILY; 100 MG ONCE DAILY, LONG TERM
  10. NAPROXEN. [Concomitant]
     Active Substance: NAPROXEN
     Dosage: 250 MG, UP TO 3 TIMES A DAY AS NECESSARY
  11. ORAMORPH [Concomitant]
     Active Substance: MORPHINE SULFATE
     Dosage: 10MG/5ML  2.5ML EVERY 4-6 HOURS AS NECESSARY
  12. LAXIDO [Concomitant]
     Active Substance: POLYETHYLENE GLYCOL 3350\POTASSIUM CHLORIDE\SODIUM BICARBONATE\SODIUM CHLORIDE
     Dosage: AS REQUIRED
  13. ALENDRONIC ACID [Concomitant]
     Active Substance: ALENDRONIC ACID
     Dosage: 70 MG ONCE WEEKLY
  14. BETAHISTINE [Concomitant]
     Active Substance: BETAHISTINE
     Dosage: 48 MILLIGRAM DAILY;
  15. CODEINE [Concomitant]
     Active Substance: CODEINE
     Dosage: 30 MG, UP TO FOUR TIMES A DAY AS NECESSARY
  16. NICOTINE. [Concomitant]
     Active Substance: NICOTINE
     Dosage: 1 DOSAGE FORMS DAILY; 1 DF ONCE A DAY, 21MG/24H
  17. PAROXETINE. [Concomitant]
     Active Substance: PAROXETINE
     Dosage: 20 MILLIGRAM DAILY; 20 MG ONCE DAILY, IN THE MORNING
  18. SPIRIVA [Concomitant]
     Active Substance: TIOTROPIUM BROMIDE MONOHYDRATE
     Dosage: 18 MICROGRAM DAILY;
  19. GLICLAZIDE [Concomitant]
     Active Substance: GLICLAZIDE
     Dosage: 40 MILLIGRAM DAILY; 40 MG ONCE DAILY, IN THE MORNING
  20. METOCLOPRAMIDE. [Concomitant]
     Active Substance: METOCLOPRAMIDE
     Dosage: 10 MG, UP TO 3 TIMES A DAY AS NECESSARY
  21. VENTOLIN [Concomitant]
     Active Substance: ALBUTEROL SULFATE
     Dosage: 200 MCG, AS REQUIRED

REACTIONS (4)
  - Somnolence [Recovered/Resolved]
  - Dyspnoea [Recovered/Resolved]
  - Tremor [Recovered/Resolved]
  - Overdose [Unknown]

NARRATIVE: CASE EVENT DATE: 20160223
